FAERS Safety Report 23771539 (Version 2)
Quarter: 2024Q2

REPORT INFORMATION
  Report Type: Report from Study
  Country: US (occurrence: US)
  Receive Date: 20240423
  Receipt Date: 20240430
  Transmission Date: 20240715
  Serious: Yes (Hospitalization)
  Sender: FDA-Public Use
  Company Number: US-AMGEN-USASP2024077839

PATIENT
  Age: 84 Year
  Sex: Female

DRUGS (3)
  1. TAVNEOS [Suspect]
     Active Substance: AVACOPAN
     Indication: Vasculitis
     Dosage: 30 MILLIGRAM, BID (THREE CAPSULES TWICE DAILY WITH MEALS)
     Route: 048
     Dates: start: 20240314, end: 20240411
  2. TAVNEOS [Suspect]
     Active Substance: AVACOPAN
     Indication: Arteritis
  3. PREDNISONE [Concomitant]
     Active Substance: PREDNISONE
     Indication: Rash macular
     Dosage: 5 MILLIGRAM, QD
     Route: 048
     Dates: start: 20240405

REACTIONS (4)
  - Visual impairment [Recovering/Resolving]
  - Hepatic mass [Recovering/Resolving]
  - Abdominal pain upper [Recovering/Resolving]
  - Nausea [Recovering/Resolving]

NARRATIVE: CASE EVENT DATE: 20240405
